FAERS Safety Report 11915339 (Version 1)
Quarter: 2016Q1

REPORT INFORMATION
  Report Type: Spontaneous
  Country: US (occurrence: US)
  Receive Date: 20160114
  Receipt Date: 20160114
  Transmission Date: 20160526
  Serious: No
  Sender: FDA-Public Use
  Company Number: US-009507513-1511USA002425

PATIENT

DRUGS (1)
  1. CANCIDAS [Suspect]
     Active Substance: CASPOFUNGIN ACETATE
     Indication: FUNGAL INFECTION
     Dosage: UNK

REACTIONS (1)
  - Hepatic enzyme increased [Unknown]
